FAERS Safety Report 7916962-1 (Version None)
Quarter: 2011Q4

REPORT INFORMATION
  Report Type: 
  Country: None (occurrence: None)
  Receive Date: 20111116
  Receipt Date: 20111113
  Transmission Date: 20120403
  Serious: Yes (Hospitalization)
  Sender: FDA-Public Use
  Company Number: NZ-CEPHALON-2011005799

PATIENT
  Sex: Female
  Weight: 75 kg

DRUGS (6)
  1. RITUXIMAB [Suspect]
     Indication: B-CELL LYMPHOMA
     Route: 042
     Dates: start: 20110525, end: 20111109
  2. SYMBICORT [Concomitant]
     Dates: start: 20050101
  3. ZOFRAN [Concomitant]
     Dates: start: 20110526
  4. MAXOLON [Concomitant]
     Dates: start: 20110525
  5. BENDAMUSTINE HCL [Suspect]
     Indication: B-CELL LYMPHOMA
     Route: 042
     Dates: start: 20110526, end: 20111110
  6. SYNTHROID [Concomitant]
     Dates: start: 19960101

REACTIONS (1)
  - DIVERTICULITIS [None]
